FAERS Safety Report 7119209-1 (Version None)
Quarter: 2010Q4

REPORT INFORMATION
  Report Type: 
  Country: None (occurrence: None)
  Receive Date: 20101123
  Receipt Date: 20101117
  Transmission Date: 20110411
  Serious: Yes (Other)
  Sender: FDA-Public Use
  Company Number: US-BAYER-201031778NA

PATIENT
  Age: 63 Year
  Sex: Male
  Weight: 91 kg

DRUGS (2)
  1. AVELOX [Suspect]
     Indication: GASTROINTESTINAL DISORDER
     Route: 048
     Dates: start: 20100501
  2. LOTRIL [Concomitant]

REACTIONS (1)
  - ADVERSE DRUG REACTION [None]
